FAERS Safety Report 9631081 (Version 1)
Quarter: 2013Q4

REPORT INFORMATION
  Report Type: Spontaneous
  Country: GB (occurrence: None)
  Receive Date: 20131015
  Receipt Date: 20131015
  Transmission Date: 20140711
  Serious: Yes (Other)
  Sender: FDA-Public Use
  Company Number: 2013-003187

PATIENT
  Sex: 0

DRUGS (2)
  1. ASACOL (MESALAZINE) MODIFIED-RELEASE TABLET, 400 MG [Suspect]
     Indication: COLITIS ULCERATIVE
     Route: 048
  2. ASACOL [Suspect]
     Indication: COLITIS ULCERATIVE
     Route: 048

REACTIONS (1)
  - Gastrooesophageal cancer [None]
